FAERS Safety Report 7301090-9 (Version None)
Quarter: 2011Q1

REPORT INFORMATION
  Report Type: 
  Country: None (occurrence: None)
  Receive Date: 20110218
  Receipt Date: 20110214
  Transmission Date: 20110831
  Serious: Yes (Hospitalization)
  Sender: FDA-Public Use
  Company Number: US-BRISTOL-MYERS SQUIBB COMPANY-15533623

PATIENT
  Sex: Female

DRUGS (1)
  1. AVALIDE [Suspect]
     Indication: BLOOD PRESSURE
     Dosage: 1 DF = 300/25 MG
     Route: 048

REACTIONS (4)
  - DECREASED APPETITE [None]
  - DRY MOUTH [None]
  - HYPERHIDROSIS [None]
  - VERTIGO [None]
